FAERS Safety Report 24137565 (Version 1)
Quarter: 2024Q3

REPORT INFORMATION
  Report Type: Report from Study
  Country: CA (occurrence: CA)
  Receive Date: 20240725
  Receipt Date: 20240725
  Transmission Date: 20241016
  Serious: Yes (Hospitalization)
  Sender: OTSUKA
  Company Number: CA-OTSUKA-2024_020345

PATIENT
  Sex: Male

DRUGS (1)
  1. TOLVAPTAN [Suspect]
     Active Substance: TOLVAPTAN
     Indication: Congenital cystic kidney disease
     Dosage: 90 MG
     Route: 048

REACTIONS (7)
  - Cardiac disorder [Unknown]
  - Loss of consciousness [Unknown]
  - Joint effusion [Unknown]
  - Spinal deformity [Unknown]
  - Gait inability [Unknown]
  - Swelling [Unknown]
  - Therapy interrupted [Unknown]
